FAERS Safety Report 7417835-3 (Version None)
Quarter: 2011Q2

REPORT INFORMATION
  Report Type: 
  Country: None (occurrence: None)
  Receive Date: 20110415
  Receipt Date: 20110404
  Transmission Date: 20111010
  Serious: Yes (Other)
  Sender: FDA-Public Use
  Company Number: US-ELI_LILLY_AND_COMPANY-US201104001551

PATIENT

DRUGS (3)
  1. ZYPREXA [Suspect]
     Dosage: 10 MG, NIGHTLY
     Dates: end: 20110401
  2. BYSTOLIC [Concomitant]
     Dosage: 5 MG, UNK
     Dates: end: 20110401
  3. CYMBALTA [Suspect]
     Dosage: 120 MG, UNK
     Dates: end: 20110401

REACTIONS (6)
  - DEPRESSION [None]
  - DISCOMFORT [None]
  - PAIN [None]
  - NEUROLEPTIC MALIGNANT SYNDROME [None]
  - BODY TEMPERATURE INCREASED [None]
  - ANXIETY [None]
